FAERS Safety Report 6018337-1 (Version None)
Quarter: 2008Q4

REPORT INFORMATION
  Report Type: 
  Country: None (occurrence: None)
  Receive Date: 20081223
  Receipt Date: 20081215
  Transmission Date: 20090506
  Serious: Yes (Hospitalization)
  Sender: FDA-Public Use
  Company Number: AU-ABBOTT-08P-008-0458834-00

PATIENT
  Sex: Female
  Weight: 75 kg

DRUGS (5)
  1. HUMIRA [Suspect]
     Indication: RHEUMATOID ARTHRITIS
     Route: 058
     Dates: start: 20031127
  2. ALDOMET [Concomitant]
     Indication: HYPERTENSION
     Route: 048
     Dates: start: 20070910
  3. HYDROCHLOROTHIAZIDE [Concomitant]
     Indication: HYPERTENSION
     Route: 048
     Dates: start: 20070827
  4. FERROUS FUMARATE W/FOLIC ACID [Concomitant]
     Indication: HAEMOGLOBIN DECREASED
     Dosage: 310MG/350MG
     Route: 048
     Dates: start: 20080318
  5. METHOTREXATE [Concomitant]
     Indication: RHEUMATOID ARTHRITIS
     Route: 048
     Dates: start: 20060830

REACTIONS (1)
  - CATARACT [None]
